FAERS Safety Report 4774004-3 (Version None)
Quarter: 2005Q3

REPORT INFORMATION
  Report Type: 
  Country: None (occurrence: None)
  Receive Date: 20050920
  Receipt Date: 20050602
  Transmission Date: 20060218
  Serious: Yes (Hospitalization)
  Sender: FDA-Public Use
  Company Number: PHBS2005NL07950

PATIENT
  Age: 22 Year
  Sex: Female

DRUGS (4)
  1. KEPPRA [Concomitant]
     Dosage: 250 MG, BID
     Route: 048
  2. LAMICTAL [Concomitant]
  3. STESOLID [Concomitant]
  4. LAMISIL [Suspect]
     Dosage: UNK, UNK
     Route: 048
     Dates: start: 20050419, end: 20050609

REACTIONS (1)
  - EPILEPSY [None]
